FAERS Safety Report 4803801-0 (Version None)
Quarter: 2005Q4

REPORT INFORMATION
  Report Type: 
  Country: None (occurrence: None)
  Receive Date: 20051014
  Receipt Date: 20050928
  Transmission Date: 20060501
  Serious: Yes (Other)
  Sender: FDA-Public Use
  Company Number: 2005-0008745

PATIENT
  Age: 42 Year
  Sex: Male

DRUGS (7)
  1. VIREAD [Suspect]
     Dates: end: 20030602
  2. VIREAD [Suspect]
     Dates: start: 20030605
  3. LAMIVUDINE [Concomitant]
  4. KALETRA [Concomitant]
  5. TACROLIMUS (TACROLIMUS) [Concomitant]
  6. PEGYLATED INTERFERON (INTERFERON) [Concomitant]
  7. RIBAVIRIN [Concomitant]

REACTIONS (10)
  - APATHY [None]
  - ASTHENIA [None]
  - CD4 LYMPHOCYTES DECREASED [None]
  - DEPRESSION [None]
  - DISEASE RECURRENCE [None]
  - DRUG INTERACTION [None]
  - DRUG LEVEL INCREASED [None]
  - HEPATITIS C [None]
  - LIVER TRANSPLANT [None]
  - WEIGHT DECREASED [None]
